FAERS Safety Report 24129002 (Version 1)
Quarter: 2024Q3

REPORT INFORMATION
  Report Type: Spontaneous
  Country: US (occurrence: None)
  Receive Date: 20240722
  Receipt Date: 20240722
  Transmission Date: 20241016
  Serious: Yes (Death)
  Sender: Public
  Company Number: None

PATIENT
  Age: 75 Year
  Sex: Male
  Weight: 90 kg

DRUGS (4)
  1. TECARTUS [Suspect]
     Active Substance: BREXUCABTAGENE AUTOLEUCEL
     Indication: Diffuse large B-cell lymphoma refractory
     Dosage: OTHER FREQUENCY : 1;?
     Route: 042
     Dates: start: 20240617, end: 20240617
  2. SODIUM [Concomitant]
     Active Substance: SODIUM
  3. SODIUM [Concomitant]
     Active Substance: SODIUM
  4. SODIUM [Concomitant]
     Active Substance: SODIUM

REACTIONS (6)
  - Hypotension [None]
  - Mental impairment [None]
  - Hypoxia [None]
  - Blood lactic acid increased [None]
  - Acute kidney injury [None]
  - Shock [None]

NARRATIVE: CASE EVENT DATE: 20240621
